FAERS Safety Report 10986969 (Version 1)
Quarter: 2015Q2

REPORT INFORMATION
  Report Type: Spontaneous
  Country: US (occurrence: None)
  Receive Date: 20150402
  Receipt Date: 20150402
  Transmission Date: 20150821
  Serious: Yes (Other)
  Sender: FDA-Public Use
  Company Number: ADE15-021

PATIENT
  Age: 54 Year
  Sex: Female
  Weight: 151.5 kg

DRUGS (12)
  1. KETAMINE [Concomitant]
     Active Substance: KETAMINE
  2. MEDAZOLAM [Concomitant]
  3. INSULIN [Concomitant]
     Active Substance: INSULIN NOS
  4. FENTANYL. [Concomitant]
     Active Substance: FENTANYL
  5. ROCURONIUM [Concomitant]
     Active Substance: ROCURONIUM BROMIDE
  6. HEPARIN SODIUM. [Suspect]
     Active Substance: HEPARIN SODIUM
     Indication: AORTIC VALVE REPLACEMENT
     Dosage: 74,000 U TOTAL DOSE
     Route: 042
     Dates: start: 20150325, end: 20150325
  7. TRANEXAMIC ACID. [Concomitant]
     Active Substance: TRANEXAMIC ACID
  8. GENTAMICIN. [Concomitant]
     Active Substance: GENTAMICIN
  9. LACTATED RINGERS [Concomitant]
     Active Substance: CALCIUM CHLORIDE\POTASSIUM CHLORIDE\SODIUM CHLORIDE\SODIUM LACTATE
  10. PHENYLEPHRINE [Concomitant]
     Active Substance: PHENYLEPHRINE\PHENYLEPHRINE HYDROCHLORIDE
  11. SALINE [Concomitant]
     Active Substance: SODIUM CHLORIDE
  12. VANCOMYCIN [Concomitant]
     Active Substance: VANCOMYCIN

REACTIONS (1)
  - Drug effect decreased [None]

NARRATIVE: CASE EVENT DATE: 20150325
